FAERS Safety Report 25791335 (Version 3)
Quarter: 2025Q4

REPORT INFORMATION
  Report Type: Spontaneous
  Country: EU (occurrence: EU)
  Receive Date: 20250911
  Receipt Date: 20251209
  Transmission Date: 20260118
  Serious: Yes (Life-Threatening, Hospitalization, Other)
  Sender: MERCK SHARP & DOHME LLC
  Company Number: None

PATIENT
  Age: 68 Year
  Sex: Female

DRUGS (2)
  1. KEYTRUDA [Suspect]
     Active Substance: PEMBROLIZUMAB
     Indication: Lung carcinoma cell type unspecified stage IV
     Dosage: 200 MG EVERY 21 DAYS
     Route: 042
     Dates: start: 20250123, end: 20250702
  2. PEMETREXED DISODIUM [Suspect]
     Active Substance: PEMETREXED DISODIUM
     Indication: Lung carcinoma cell type unspecified stage IV
     Dosage: 500 MG/M2 EVERY 21 DAYS
     Route: 042
     Dates: start: 20250123, end: 20250702

REACTIONS (9)
  - Septic shock [Recovered/Resolved]
  - Anaemia [Recovering/Resolving]
  - Hypoxia [Not Recovered/Not Resolved]
  - Traumatic fracture [Not Recovered/Not Resolved]
  - Performance status decreased [Not Recovered/Not Resolved]
  - Urinary tract infection [Recovering/Resolving]
  - Sepsis [Not Recovered/Not Resolved]
  - Sopor [Not Recovered/Not Resolved]
  - Loss of consciousness [Recovered/Resolved with Sequelae]

NARRATIVE: CASE EVENT DATE: 20250719
